FAERS Safety Report 6666976-7 (Version None)
Quarter: 2010Q2

REPORT INFORMATION
  Report Type: 
  Country: None (occurrence: None)
  Receive Date: 20100405
  Receipt Date: 20100331
  Transmission Date: 20101027
  Serious: Yes (Death, Hospitalization)
  Sender: FDA-Public Use
  Company Number: PHHY2009CA38269

PATIENT
  Sex: Female

DRUGS (1)
  1. CGP 42446 [Suspect]
     Indication: BREAST CANCER METASTATIC
     Dosage: 4 MG, Q3W
     Route: 042
     Dates: start: 20090828, end: 20091028

REACTIONS (4)
  - DEATH [None]
  - HIP ARTHROPLASTY [None]
  - HIP FRACTURE [None]
  - METASTASES TO BONE [None]
